FAERS Safety Report 5311923-3 (Version None)
Quarter: 2007Q2

REPORT INFORMATION
  Report Type: 
  Country: None (occurrence: None)
  Receive Date: 20070430
  Receipt Date: 20060502
  Transmission Date: 20071010
  Serious: No
  Sender: FDA-Public Use
  Company Number: 2006UW08527

PATIENT
  Age: 82 Year
  Sex: Male
  Weight: 88 kg

DRUGS (4)
  1. NEXIUM [Suspect]
     Indication: GASTROOESOPHAGEAL REFLUX DISEASE
     Route: 048
     Dates: start: 20060401
  2. POTASSIUM ACETATE [Concomitant]
  3. GABAPENTIN [Concomitant]
  4. SELOBIPINE [Concomitant]
     Indication: BLOOD PRESSURE

REACTIONS (3)
  - DECREASED APPETITE [None]
  - ERUCTATION [None]
  - FLATULENCE [None]
